FAERS Safety Report 6073313-8 (Version None)
Quarter: 2009Q1

REPORT INFORMATION
  Report Type: 
  Country: None (occurrence: None)
  Receive Date: 20090211
  Receipt Date: 20090202
  Transmission Date: 20090719
  Serious: Yes (Other)
  Sender: FDA-Public Use
  Company Number: PHHY2008FR25401

PATIENT
  Sex: Female
  Weight: 65 kg

DRUGS (4)
  1. ACLASTA [Suspect]
     Dosage: UNK
     Dates: start: 20080816
  2. PROPRANOLOL [Concomitant]
     Dosage: 0.5 DF, BID
     Route: 048
  3. TRIMETAZIDINE [Concomitant]
     Dosage: 1 DF, TID
     Route: 048
  4. CIPROFIBRATE [Concomitant]
     Dosage: 1 TABLET/DAY

REACTIONS (12)
  - DIZZINESS [None]
  - EAR PAIN [None]
  - FEELING HOT [None]
  - HEADACHE [None]
  - INFLUENZA LIKE ILLNESS [None]
  - MUSCULOSKELETAL STIFFNESS [None]
  - NAUSEA [None]
  - OROPHARYNGEAL PAIN [None]
  - PALPITATIONS [None]
  - PYREXIA [None]
  - TACHYCARDIA [None]
  - TOOTHACHE [None]
